FAERS Safety Report 5465283-8 (Version None)
Quarter: 2007Q3

REPORT INFORMATION
  Report Type: 
  Country: None (occurrence: None)
  Receive Date: 20070920
  Receipt Date: 20070920
  Transmission Date: 20080115
  Serious: No
  Sender: FDA-Public Use
  Company Number: None

PATIENT
  Age: 74 Year
  Sex: Male

DRUGS (4)
  1. FUROSEMIDE [Suspect]
     Dosage: 1 TABLET DAILY
     Dates: start: 20061101
  2. FUROSEMIDE [Suspect]
  3. FUROSEMIDE [Suspect]
  4. FUROSEMIDE [Suspect]

REACTIONS (2)
  - DRUG EFFECT DECREASED [None]
  - POOR QUALITY DRUG ADMINISTERED [None]
